FAERS Safety Report 9684751 (Version 1)
Quarter: 2013Q4

REPORT INFORMATION
  Report Type: Spontaneous
  Country: US (occurrence: US)
  Receive Date: 20131112
  Receipt Date: 20131112
  Transmission Date: 20140711
  Serious: Yes (Other)
  Sender: FDA-Public Use
  Company Number: US-RB-060343-13

PATIENT
  Age: 48 Year
  Sex: Female

DRUGS (6)
  1. SUBOXONE FILM [Suspect]
     Dosage: SUBOXONE FILM.
     Route: 060
     Dates: start: 201303, end: 2013
  2. SUBOXONE FILM [Suspect]
     Dosage: SUBOXONE FILM
     Route: 060
     Dates: start: 2013, end: 201308
  3. SUBOXONE FILM [Suspect]
     Indication: DRUG DEPENDENCE
     Dosage: SUBOXONE FILM; TAKING VARIOUS SELF-TAPERED DOSES.
     Route: 060
     Dates: start: 201308
  4. ZOLOFT [Concomitant]
     Indication: DEPRESSION
     Route: 048
  5. MELERIL [Concomitant]
     Indication: BIPOLAR DISORDER
     Route: 048
  6. TRAZODONE [Concomitant]
     Indication: DEPRESSION
     Dosage: UNKNOWN DOSING DETAILS.
     Route: 048

REACTIONS (5)
  - Drug abuse [Recovered/Resolved]
  - Wrong technique in drug usage process [Not Recovered/Not Resolved]
  - Intentional underdose [Not Recovered/Not Resolved]
  - Negative thoughts [Not Recovered/Not Resolved]
  - Intentional self-injury [Recovered/Resolved]
